FAERS Safety Report 19820349 (Version 2)
Quarter: 2021Q3

REPORT INFORMATION
  Report Type: Spontaneous
  Country: BE (occurrence: BE)
  Receive Date: 20210913
  Receipt Date: 20210913
  Transmission Date: 20211014
  Serious: Yes (Hospitalization, Other)
  Sender: FDA-Public Use
  Company Number: BE-ABBVIE-21K-013-4076699-00

PATIENT
  Age: 46 Year
  Sex: Male

DRUGS (1)
  1. IMBRUVICA [Suspect]
     Active Substance: IBRUTINIB
     Indication: CHRONIC LYMPHOCYTIC LEUKAEMIA
     Route: 048
     Dates: start: 201602

REACTIONS (4)
  - Diffuse large B-cell lymphoma [Unknown]
  - Treatment noncompliance [Unknown]
  - Richter^s syndrome [Unknown]
  - Epstein-Barr virus infection reactivation [Unknown]
